FAERS Safety Report 7549978-8 (Version None)
Quarter: 2011Q2

REPORT INFORMATION
  Report Type: 
  Country: None (occurrence: None)
  Receive Date: 20110615
  Receipt Date: 20110606
  Transmission Date: 20111010
  Serious: Yes (Other)
  Sender: FDA-Public Use
  Company Number: US-ASTRAZENECA-2011SE34654

PATIENT
  Age: 52 Year
  Sex: Female

DRUGS (2)
  1. VENLAFAXINE HYDROCHLORIDE [Concomitant]
  2. SEROQUEL XR [Suspect]
     Indication: BIPOLAR II DISORDER
     Route: 048

REACTIONS (2)
  - DRUG DOSE OMISSION [None]
  - SUICIDAL IDEATION [None]
